FAERS Safety Report 8088663-3 (Version None)
Quarter: 2012Q1

REPORT INFORMATION
  Report Type: 
  Country: None (occurrence: None)
  Receive Date: 20120128
  Receipt Date: 20110426
  Transmission Date: 20120608
  Serious: No
  Sender: FDA-Public Use
  Company Number: US-ABBOTT-11P-163-0718642-00

PATIENT
  Sex: Female
  Weight: 86.26 kg

DRUGS (6)
  1. SYNTHROID [Concomitant]
     Indication: THYROID DISORDER
     Dosage: UNKNOWN STRENGTH
     Route: 048
  2. ALLEGRA [Concomitant]
     Indication: SEASONAL ALLERGY
     Dosage: UNKNOWN STRENGTH
     Route: 048
  3. HUMIRA [Suspect]
     Indication: PSORIASIS
  4. LISINOPRIL [Concomitant]
     Indication: HYPERTENSION
     Dosage: UNKNOWN STRENGTH
     Route: 048
  5. HUMIRA [Suspect]
     Indication: PSORIATIC ARTHROPATHY
     Route: 058
     Dates: start: 20100101
  6. ALBUTEROL [Concomitant]
     Indication: ASTHMA
     Route: 055

REACTIONS (4)
  - EPISTAXIS [None]
  - ARTHRALGIA [None]
  - VISION BLURRED [None]
  - HEADACHE [None]
